FAERS Safety Report 16794679 (Version 1)
Quarter: 2019Q3

REPORT INFORMATION
  Report Type: Spontaneous
  Country: BR (occurrence: BR)
  Receive Date: 20190911
  Receipt Date: 20190911
  Transmission Date: 20191005
  Serious: Yes (Other)
  Sender: FDA-Public Use
  Company Number: BR-ROCHE-2398794

PATIENT
  Sex: Female

DRUGS (2)
  1. LEXOTAN [Suspect]
     Active Substance: BROMAZEPAM
     Indication: INSOMNIA
     Route: 065
     Dates: start: 19980101
  2. RIVOTRIL [Suspect]
     Active Substance: CLONAZEPAM
     Indication: INSOMNIA
     Route: 065
     Dates: start: 20030101

REACTIONS (7)
  - Femur fracture [Unknown]
  - Road traffic accident [Unknown]
  - Limb discomfort [Unknown]
  - Intentional product use issue [Unknown]
  - Dizziness [Unknown]
  - Coordination abnormal [Unknown]
  - Off label use [Unknown]

NARRATIVE: CASE EVENT DATE: 1999
